FAERS Safety Report 7332407-7 (Version None)
Quarter: 2011Q1

REPORT INFORMATION
  Report Type: 
  Country: None (occurrence: None)
  Receive Date: 20110304
  Receipt Date: 20110301
  Transmission Date: 20110831
  Serious: Yes (Life-Threatening, Hospitalization, Other)
  Sender: FDA-Public Use
  Company Number: DE-JNJFOC-20110103990

PATIENT
  Age: 19 Year
  Sex: Male

DRUGS (4)
  1. AKINETON [Concomitant]
     Dosage: THERAPY DURATION: APPROXIMATELY 3 MONTHS
     Route: 048
  2. BROMPERIDOL [Concomitant]
     Dosage: THERAPY DURATION: APPROXIMATELY 3 MONTHS
     Route: 048
  3. RISPERDAL [Suspect]
     Indication: SCHIZOPHRENIA, PARANOID TYPE
     Dosage: THERAPY DURATION: APPROXIMATELY 3 MONTHS
     Route: 048
  4. RISPERDAL CONSTA [Suspect]
     Indication: SCHIZOPHRENIA, PARANOID TYPE
     Dosage: THERAPY DURATION: APPROXIMATELY 3 MONTHS
     Route: 030

REACTIONS (1)
  - PNEUMOTHORAX [None]
